FAERS Safety Report 7325372-X (Version None)
Quarter: 2011Q1

REPORT INFORMATION
  Report Type: 
  Country: None (occurrence: None)
  Receive Date: 20110302
  Receipt Date: 20110218
  Transmission Date: 20110831
  Serious: Yes (Other)
  Sender: FDA-Public Use
  Company Number: US-JNJFOC-20110207749

PATIENT
  Sex: Female

DRUGS (1)
  1. VISINE ADVANCED RELIEF [Suspect]
     Indication: OCULAR HYPERAEMIA
     Dosage: ONE DROP IN EACH EYE, 4-5 TIMES A DAY
     Route: 047

REACTIONS (4)
  - EYE DISORDER [None]
  - OCULAR HYPERAEMIA [None]
  - EYE IRRITATION [None]
  - EYE PAIN [None]
